FAERS Safety Report 20614598 (Version 1)
Quarter: 2022Q1

REPORT INFORMATION
  Report Type: Spontaneous
  Country: US (occurrence: US)
  Receive Date: 20220321
  Receipt Date: 20220321
  Transmission Date: 20220423
  Serious: Yes (Death, Hospitalization, Other)
  Sender: FDA-Public Use
  Company Number: US-APOTEX-2022AP004494

PATIENT
  Age: 71 Year
  Sex: Female

DRUGS (2)
  1. CYCLOSPORINE [Suspect]
     Active Substance: CYCLOSPORINE
     Indication: Toxic epidermal necrolysis
     Dosage: 100 MILLIGRAM, Q.12H, (4 MG/ KG/D)
     Route: 065
  2. ETANERCEPT [Suspect]
     Active Substance: ETANERCEPT
     Indication: Toxic epidermal necrolysis
     Dosage: 50 MILLIGRAM
     Route: 058

REACTIONS (3)
  - Acute kidney injury [Unknown]
  - Sepsis [Fatal]
  - Drug ineffective [Unknown]
